FAERS Safety Report 7135484-1 (Version None)
Quarter: 2010Q4

REPORT INFORMATION
  Report Type: 
  Country: None (occurrence: None)
  Receive Date: 20101203
  Receipt Date: 20101129
  Transmission Date: 20110411
  Serious: Yes (Hospitalization)
  Sender: FDA-Public Use
  Company Number: GB-AMGEN-GBRCT2010006458

PATIENT
  Sex: Male

DRUGS (11)
  1. PANITUMUMAB [Suspect]
     Indication: GASTROOESOPHAGEAL CANCER
     Dosage: UNK
     Dates: start: 20100521
  2. EPIRUBICIN [Suspect]
     Dosage: UNK
     Dates: start: 20100521
  3. OXALIPLATIN [Suspect]
     Dosage: UNK
     Dates: start: 20100521
  4. CAPECITABINE [Suspect]
     Dosage: UNK
     Dates: start: 20100521, end: 20100720
  5. BENDROFLUMETHIAZIDE [Concomitant]
     Dosage: 2.5 MG, QD
  6. TAMSULOSIN [Concomitant]
     Dosage: 400 MG, QD
  7. CETIRIZINE HCL [Concomitant]
     Dosage: 10 MG, UNK
  8. DIPROBASE                          /01007601/ [Concomitant]
     Dosage: UNK UNK, PRN
     Route: 061
  9. AQUEOUS                            /00498501/ [Concomitant]
     Dosage: UNK UNK, PRN
     Route: 061
  10. LANSOPRAZOLE [Concomitant]
  11. ASPIRIN [Concomitant]

REACTIONS (2)
  - HYPOTENSION [None]
  - SYNCOPE [None]
